FAERS Safety Report 10090024 (Version 6)
Quarter: 2014Q3

REPORT INFORMATION
  Report Type: Report from Study
  Country: GB (occurrence: GB)
  Receive Date: 20140421
  Receipt Date: 20140910
  Transmission Date: 20150326
  Serious: Yes (Hospitalization)
  Sender: FDA-Public Use
  Company Number: GB-ROCHE-1380401

PATIENT
  Age: 52 Year
  Sex: Female
  Weight: 79.3 kg

DRUGS (6)
  1. OBINUTUZUMAB [Suspect]
     Active Substance: OBINUTUZUMAB
     Indication: NON-HODGKIN^S LYMPHOMA UNSPECIFIED HISTOLOGY INDOLENT
     Dosage: FREQUENCY AS PER PROTOCOL : DAYS 1, 8 AND 15 OF CYCLE 1 AND DAY 1 OF CYCLES 2 - 6.
     Route: 042
     Dates: start: 20140403
  2. BENDAMUSTINE [Suspect]
     Active Substance: BENDAMUSTINE
     Indication: NON-HODGKIN^S LYMPHOMA UNSPECIFIED HISTOLOGY INDOLENT
     Dosage: DATE OF LAST DOSE PRIOR TO SAE : 04/APR/2014,?FREQUENCY AS PER PROTOCOL : DAYS 2 AND 3 OF CYCLE 1 AN
     Route: 042
     Dates: start: 20140403
  3. SIMVASTATIN. [Concomitant]
     Active Substance: SIMVASTATIN
     Indication: DEEP VEIN THROMBOSIS
     Route: 065
     Dates: end: 20140407
  4. METFORMIN [Concomitant]
     Active Substance: METFORMIN HYDROCHLORIDE
     Indication: TYPE 2 DIABETES MELLITUS
     Route: 065
     Dates: end: 20140407
  5. ACICLOVIR [Concomitant]
     Active Substance: ACYCLOVIR
     Indication: PROPHYLAXIS
  6. ASPIRIN. [Concomitant]
     Active Substance: ASPIRIN
     Indication: DEEP VEIN THROMBOSIS

REACTIONS (1)
  - Vomiting [Recovered/Resolved]

NARRATIVE: CASE EVENT DATE: 20140406
